FAERS Safety Report 16199834 (Version 1)
Quarter: 2019Q2

REPORT INFORMATION
  Report Type: Spontaneous
  Country: US (occurrence: US)
  Receive Date: 20190415
  Receipt Date: 20190415
  Transmission Date: 20190711
  Serious: Yes (Other)
  Sender: FDA-Public Use
  Company Number: US-PFIZER INC-2019119532

PATIENT
  Age: 67 Year
  Sex: Female
  Weight: 87.98 kg

DRUGS (1)
  1. TOVIAZ [Suspect]
     Active Substance: FESOTERODINE FUMARATE
     Indication: HYPERTONIC BLADDER
     Dosage: 4 MG, 1X/DAY
     Route: 048

REACTIONS (6)
  - Arthropathy [Recovering/Resolving]
  - Condition aggravated [Unknown]
  - Pain [Unknown]
  - Therapeutic product effect incomplete [Unknown]
  - Joint injury [Not Recovered/Not Resolved]
  - Movement disorder [Not Recovered/Not Resolved]

NARRATIVE: CASE EVENT DATE: 2018
